FAERS Safety Report 4698850-X (Version None)
Quarter: 2005Q2

REPORT INFORMATION
  Report Type: 
  Country: None (occurrence: None)
  Receive Date: 20050623
  Receipt Date: 20050610
  Transmission Date: 20051028
  Serious: Yes (Disabling)
  Sender: FDA-Public Use
  Company Number: S05-CAN-02203-01

PATIENT
  Age: 60 Year
  Sex: Female

DRUGS (8)
  1. CIPRALEX (ESCITALOPRAM) [Suspect]
     Indication: DEPRESSION
     Dosage: 10 MG QD PO
     Route: 048
     Dates: start: 20050428, end: 20050505
  2. MIRTAZAPINE [Concomitant]
  3. MIRAPEX [Concomitant]
  4. FOSAMAX [Concomitant]
  5. CYANOCOBALAMIN [Concomitant]
  6. RABEPRAZOLE SODIUM [Concomitant]
  7. DURAGESIC (FENTANYL) [Concomitant]
  8. TYLENOL W/ CODEINE NO. 3 [Concomitant]

REACTIONS (8)
  - ANXIETY [None]
  - ASTHENIA [None]
  - DIZZINESS [None]
  - NAUSEA [None]
  - PARANOIA [None]
  - SOMNOLENCE [None]
  - VERTIGO [None]
  - VOMITING [None]
